FAERS Safety Report 5082040-5 (Version None)
Quarter: 2006Q3

REPORT INFORMATION
  Report Type: 
  Country: None (occurrence: None)
  Receive Date: 20060817
  Receipt Date: 20051219
  Transmission Date: 20061208
  Serious: Yes (Other)
  Sender: FDA-Public Use
  Company Number: PHEH2005US13631

PATIENT
  Age: 62 Year
  Sex: Male

DRUGS (21)
  1. CORTICOSTEROID NOS [Concomitant]
  2. CHEMOTHERAPEUTICS,OTHER [Concomitant]
  3. DECADRON [Concomitant]
  4. AREDIA [Suspect]
     Indication: MULTIPLE MYELOMA
     Dosage: UNK, QMO
     Dates: start: 20050304, end: 20050901
  5. AREDIA [Suspect]
     Dosage: 90 MG QMONTH X 2 YRS THEN Q3 MONTHS
     Dates: start: 20011001, end: 20051101
  6. PAMIDRONATE DISODIUM [Suspect]
     Indication: MULTIPLE MYELOMA
     Dosage: UNK, QMO
     Dates: start: 20000804, end: 20031002
  7. L-GLUTAMINE /USA/ [Concomitant]
     Dosage: UNK, BID
     Route: 048
  8. IVEEGAM [Concomitant]
     Dosage: 1 G, UNK
  9. ACETAMINOPHEN [Concomitant]
     Dosage: 650 MG PO BEFORE IVIG
     Route: 048
  10. DIPHENHYDRAMINE HCL [Concomitant]
     Dosage: 25 MG IV 15 MIN BEFORE IVIG
     Route: 042
  11. HYDROCORTISONE TAB [Concomitant]
     Dosage: 50 MG IV 15 MINUTES BEFORE IVIG
     Route: 042
  12. THEOPHYLLINE-SR [Concomitant]
     Dosage: 600 MG, QD
     Route: 048
  13. PROCRIT                            /00909301/ [Concomitant]
     Dosage: 80,000 UNITS ONCE A WEEK
  14. PROCRIT                            /00909301/ [Concomitant]
     Dosage: 40,000 UNITS BIW
  15. PRAVACHOL [Concomitant]
     Dosage: 20 MG, QD
     Route: 048
  16. ASPIRIN [Concomitant]
     Dosage: 81 MG, QD
     Route: 048
  17. VINCRISTINE + ADRIAMYCIN + DEXAMETHASONE [Concomitant]
     Indication: MULTIPLE MYELOMA
     Dates: start: 20010101
  18. THALIDOMIDE [Concomitant]
     Indication: MULTIPLE MYELOMA
     Dosage: 100 MG, QD
     Route: 048
     Dates: start: 20021001, end: 20051001
  19. MELPHALAN [Concomitant]
     Indication: MULTIPLE MYELOMA
     Dosage: 3 CYCLES, UNK WITH PREDNISONE
     Dates: end: 20010101
  20. PREDNISONE [Concomitant]
     Indication: MULTIPLE MYELOMA
     Dosage: 25 MG EVERY OTHER DAY
     Route: 048
  21. PREDNISONE [Concomitant]
     Dosage: 3 CYCLES WITH MELPHALAN
     Dates: end: 20010101

REACTIONS (10)
  - AGITATION [None]
  - BONE DISORDER [None]
  - HYPOAESTHESIA [None]
  - IMPAIRED HEALING [None]
  - OSTEOMYELITIS [None]
  - OSTEONECROSIS [None]
  - PAIN IN JAW [None]
  - PURULENCE [None]
  - SOFT TISSUE DISORDER [None]
  - TOOTH EXTRACTION [None]
